FAERS Safety Report 9416582 (Version 2)
Quarter: 2013Q3

REPORT INFORMATION
  Report Type: Report from Study
  Country: DE (occurrence: DE)
  Receive Date: 20130724
  Receipt Date: 20130819
  Transmission Date: 20140515
  Serious: Yes (Death)
  Sender: FDA-Public Use
  Company Number: DE-ROCHE-1251522

PATIENT
  Age: 52 Year
  Sex: Female
  Weight: 55 kg

DRUGS (3)
  1. TRASTUZUMAB EMTANSINE [Suspect]
     Indication: BREAST CANCER METASTATIC
     Route: 042
     Dates: start: 20130515, end: 20130605
  2. TRASTUZUMAB [Suspect]
     Indication: BREAST CANCER METASTATIC
     Route: 042
     Dates: start: 20120926, end: 20130403
  3. CARBOPLATIN [Suspect]
     Indication: BREAST CANCER METASTATIC
     Dosage: DOSED ACCORDING TO THE AUC (AREA UNDER THE CURVE)
     Route: 042
     Dates: start: 20120926, end: 20121212

REACTIONS (1)
  - Disease progression [Fatal]
